FAERS Safety Report 15616080 (Version 1)
Quarter: 2018Q4

REPORT INFORMATION
  Report Type: Report from Study
  Country: None (occurrence: IL)
  Receive Date: 20181114
  Receipt Date: 20181114
  Transmission Date: 20190205
  Serious: Yes (Hospitalization)
  Sender: FDA-Public Use
  Company Number: IL-ABBVIE-17P-082-1926221-00

PATIENT
  Age: 82 Year
  Sex: Male

DRUGS (7)
  1. DUODOPA [Suspect]
     Active Substance: CARBIDOPA\LEVODOPA
     Dosage: CD 3.5ML/HOURS
     Route: 050
     Dates: end: 2017
  2. DUODOPA [Suspect]
     Active Substance: CARBIDOPA\LEVODOPA
     Dosage: MD- 4 ML, FIXED RATE DOSE- 3.4 ML/HOUR, FIXED RATE NIGHT DOSE- 2.1 ML, ED - 0.5 ML
     Route: 050
     Dates: start: 2017, end: 2017
  3. DUODOPA [Suspect]
     Active Substance: CARBIDOPA\LEVODOPA
     Dosage: CMD 4ML, CFR 3.5 ML/HR, CND 2.1ML, CED 0.5ML
     Route: 050
     Dates: start: 20170228
  4. DUODOPA [Suspect]
     Active Substance: CARBIDOPA\LEVODOPA
     Dosage: MD:4ML, CONTINUES RATE:3.5ML/HOUR, ND :2.1ML, ED: 0.5ML INCREASED TO 0.8ML
     Route: 050
     Dates: start: 2017
  5. DUODOPA [Suspect]
     Active Substance: CARBIDOPA\LEVODOPA
     Dosage: MORNING DOSE 4ML, CONTINUOUS DOSE 3.4ML\/HOUR, NIGHT DOSE 2.1ML EXTRA DOSE 0.5ML
     Route: 050
  6. DUODOPA [Suspect]
     Active Substance: CARBIDOPA\LEVODOPA
     Indication: PARKINSON^S DISEASE
     Dosage: MD- 4 ML, FIXED RATE DOSE- 3.4 ML/HOUR, ND- 1.9 ML, CURRENT ED- 0.5 ML.
     Route: 050
     Dates: start: 20170228, end: 2017
  7. DUODOPA [Suspect]
     Active Substance: CARBIDOPA\LEVODOPA
     Dosage: CURRENT MORNING DOSE 3.7ML, CURRENT CD 3.4ML/HOUR, CURRENT ND 2.1ML CURRENT ED 0.5ML
     Route: 050

REACTIONS (22)
  - On and off phenomenon [Recovered/Resolved]
  - Stoma site erythema [Unknown]
  - Asthenia [Unknown]
  - Depressed mood [Not Recovered/Not Resolved]
  - On and off phenomenon [Recovered/Resolved]
  - Seasonal allergy [Unknown]
  - Stoma site discharge [Unknown]
  - Restlessness [Unknown]
  - On and off phenomenon [Not Recovered/Not Resolved]
  - Medical device site infection [Unknown]
  - Extra dose administered [Unknown]
  - Device issue [Unknown]
  - Dyspnoea [Unknown]
  - Incorrect route of product administration [Recovered/Resolved]
  - Condition aggravated [Unknown]
  - Malaise [Recovered/Resolved]
  - Dyskinesia [Not Recovered/Not Resolved]
  - Vomiting [Recovered/Resolved]
  - Abdominal distension [Unknown]
  - Stoma site inflammation [Unknown]
  - Balance disorder [Not Recovered/Not Resolved]
  - Abdominal rigidity [Unknown]

NARRATIVE: CASE EVENT DATE: 2017
